FAERS Safety Report 4661393-3 (Version None)
Quarter: 2005Q2

REPORT INFORMATION
  Report Type: 
  Country: None (occurrence: None)
  Receive Date: 20050513
  Receipt Date: 20050504
  Transmission Date: 20051028
  Serious: Yes (Other)
  Sender: FDA-Public Use
  Company Number: AU-SANOFI-SYNTHELABO-A01200502967

PATIENT
  Sex: Male

DRUGS (1)
  1. STILNOX [Suspect]
     Indication: OVERDOSE
     Dosage: SEVERAL TABLETS
     Route: 065

REACTIONS (2)
  - OVERDOSE [None]
  - ROAD TRAFFIC ACCIDENT [None]
